FAERS Safety Report 8231839-2 (Version None)
Quarter: 2012Q1

REPORT INFORMATION
  Report Type: 
  Country: None (occurrence: None)
  Receive Date: 20120323
  Receipt Date: 20120316
  Transmission Date: 20120608
  Serious: Yes (Other)
  Sender: FDA-Public Use
  Company Number: JP-SANOFI-AVENTIS-2012SA012677

PATIENT

DRUGS (4)
  1. PROTON PUMP INHIBITORS [Concomitant]
  2. PLAVIX [Suspect]
     Indication: MYOCARDIAL INFARCTION
     Route: 065
  3. PLAVIX [Suspect]
     Route: 065
  4. ASPIRIN [Concomitant]
     Indication: MYOCARDIAL INFARCTION

REACTIONS (1)
  - LIVER DISORDER [None]
